FAERS Safety Report 7672623-8 (Version None)
Quarter: 2011Q3

REPORT INFORMATION
  Report Type: 
  Country: None (occurrence: None)
  Receive Date: 20110809
  Receipt Date: 20110725
  Transmission Date: 20111222
  Serious: Yes (Hospitalization)
  Sender: FDA-Public Use
  Company Number: JP-TYCO HEALTHCARE/MALLINCKRODT-T201101500

PATIENT
  Sex: Male
  Weight: 65 kg

DRUGS (20)
  1. CAFFEINE AND SODIUM BENZOATE [Concomitant]
     Dosage: 0.4 MG, BID
     Dates: start: 20110720, end: 20110728
  2. METHADONE HYDROCHLORIDE [Suspect]
     Indication: CANCER PAIN
     Dosage: 15 MG, QD
     Route: 048
     Dates: start: 20110529, end: 20110601
  3. MAGMITT [Concomitant]
     Dosage: 330 MG, TID
     Dates: start: 20110608, end: 20110728
  4. DECADRON [Concomitant]
     Dosage: 1 MG, QD
     Dates: start: 20110715, end: 20110728
  5. METHADONE HYDROCHLORIDE [Suspect]
     Dosage: 5 MG, QD
     Route: 048
     Dates: start: 20110721
  6. BACTRIM [Suspect]
     Dosage: 1 TAB QD
     Dates: start: 20110707, end: 20110728
  7. TRAVELMIN                          /00517301/ [Concomitant]
     Indication: NAUSEA
     Dosage: 1 TAB PRN
     Dates: start: 20110616, end: 20110728
  8. PROCHLORPERAZINE [Concomitant]
     Dosage: 5 MG, TID
     Dates: start: 20110722, end: 20110728
  9. TRAVELMIN                          /00517301/ [Concomitant]
     Indication: VOMITING
  10. CELECOXIB [Suspect]
     Dosage: 100 MG, BID
     Dates: start: 20110530, end: 20110728
  11. MORPHINE [Concomitant]
     Indication: CANCER PAIN
     Dosage: 10 MG, PRN
     Dates: start: 20110411
  12. METHADONE HYDROCHLORIDE [Suspect]
     Dosage: 20 MG, QD
     Route: 048
     Dates: start: 20110602, end: 20110614
  13. METHADONE HYDROCHLORIDE [Suspect]
     Dosage: 10 MG, QD
     Route: 048
     Dates: start: 20110615, end: 20110624
  14. METHADONE HYDROCHLORIDE [Suspect]
     Dosage: 10 MG, QD
     Route: 048
     Dates: start: 20110711, end: 20110720
  15. LANSOPRAZOLE [Concomitant]
     Dosage: 15 MG, QD
     Dates: start: 20110708, end: 20110728
  16. METHADONE HYDROCHLORIDE [Suspect]
     Dosage: 15 MG, QD
     Route: 048
     Dates: start: 20110625, end: 20110710
  17. IRESSA [Suspect]
     Dosage: 250 MG ONCE EVERY TWO DAYS
     Dates: start: 20110516, end: 20110725
  18. SENNARIDE [Concomitant]
     Dosage: 12-24 MG QD
     Dates: start: 20110530, end: 20110728
  19. HIRUDOID                           /00723701/ [Concomitant]
     Indication: ECZEMA ASTEATOTIC
     Dosage: ADEQUATE DOSE AS NEEDED
     Dates: start: 20110601
  20. RAMELTEON [Concomitant]
     Dosage: 0.1 MG, QD
     Dates: start: 20110705, end: 20110728

REACTIONS (2)
  - DECREASED APPETITE [None]
  - MALAISE [None]
